FAERS Safety Report 15629630 (Version 1)
Quarter: 2018Q4

REPORT INFORMATION
  Report Type: Spontaneous
  Country: DE (occurrence: DE)
  Receive Date: 20181117
  Receipt Date: 20181117
  Transmission Date: 20190205
  Serious: Yes (Death, Other)
  Sender: FDA-Public Use
  Company Number: DE-AUROBINDO-AUR-APL-2018-055596

PATIENT
  Age: 51 Year
  Sex: Female

DRUGS (11)
  1. ABACAVIR. [Concomitant]
     Active Substance: ABACAVIR
     Indication: HIV INFECTION
     Dosage: UNK
     Route: 065
     Dates: start: 20180711
  2. BEDAQUILINE [Suspect]
     Active Substance: BEDAQUILINE
     Indication: TUBERCULOSIS
     Dosage: 200 MILLIGRAM, DAILY (200 MG, QD)
     Route: 048
     Dates: start: 20180803, end: 20181009
  3. COTRIMOXAZOLE [Concomitant]
     Active Substance: SULFAMETHOXAZOLE\TRIMETHOPRIM
     Indication: TUBERCULOSIS
     Dosage: UNK
     Route: 065
     Dates: start: 20180711
  4. DELAMANID [Suspect]
     Active Substance: DELAMANID
     Indication: TUBERCULOSIS
     Dosage: 200 MILLIGRAM, DAILY (200 MG, QD)
     Route: 048
     Dates: start: 20180803, end: 20181009
  5. CLOFAZIMINE [Suspect]
     Active Substance: CLOFAZIMINE
     Indication: TUBERCULOSIS
     Dosage: 100 MILLIGRAM, DAILY (100 MG, QD)
     Route: 048
     Dates: start: 20180803, end: 20181009
  6. THYROXIN [Concomitant]
     Active Substance: LEVOTHYROXINE
     Indication: HYPOTHYROIDISM
     Dosage: UNK
     Route: 065
     Dates: start: 20180720
  7. COTRIMOXAZOLE [Concomitant]
     Active Substance: SULFAMETHOXAZOLE\TRIMETHOPRIM
     Indication: HIV INFECTION
     Dosage: UNK
     Route: 065
  8. PREDNISOLONE. [Concomitant]
     Active Substance: PREDNISOLONE
     Indication: IMMUNE THROMBOCYTOPENIC PURPURA
     Dosage: UNK
     Route: 065
  9. LEVOFLOXACIN. [Suspect]
     Active Substance: LEVOFLOXACIN
     Indication: TUBERCULOSIS
     Dosage: 750 MILLIGRAM, DAILY (750 MG, QD)
     Route: 048
     Dates: start: 20180803, end: 20181009
  10. NEVIRAPINE. [Concomitant]
     Active Substance: NEVIRAPINE
     Indication: HIV INFECTION
     Dosage: UNK
     Route: 065
     Dates: start: 20180917
  11. 3TC [Concomitant]
     Active Substance: LAMIVUDINE
     Indication: HIV INFECTION
     Dosage: UNK
     Route: 065
     Dates: start: 20180711

REACTIONS (11)
  - Deep vein thrombosis [Fatal]
  - Vomiting [Fatal]
  - Hypokalaemia [Fatal]
  - Adrenal insufficiency [Fatal]
  - Pulmonary embolism [Fatal]
  - Dyspnoea [Fatal]
  - Blood pressure decreased [Fatal]
  - Hypothyroidism [Fatal]
  - Electrolyte imbalance [Fatal]
  - Hyponatraemia [Fatal]
  - Gamma-glutamyltransferase increased [Unknown]

NARRATIVE: CASE EVENT DATE: 20180820
